FAERS Safety Report 8766911 (Version 2)
Quarter: 2012Q4

REPORT INFORMATION
  Report Type: 
  Country: US (occurrence: US)
  Receive Date: 20120904
  Receipt Date: 20120925
  Transmission Date: 20130627
  Serious: Yes (Disabling, Other)
  Sender: FDA-Public Use
  Company Number: US-PFIZER INC-2012214339

PATIENT
  Age: 52 Year
  Sex: Male
  Weight: 74.29 kg

DRUGS (4)
  1. LIPITOR [Suspect]
     Indication: BLOOD CHOLESTEROL INCREASED
     Dosage: 80mg once a day
     Route: 048
     Dates: start: 2008
  2. INSULIN [Concomitant]
     Indication: DIABETES MELLITUS
     Dosage: UNK
  3. METOPROLOL [Concomitant]
     Indication: HYPERTENSION
     Dosage: UNK, two times a day
  4. LISINOPRIL [Concomitant]
     Indication: HYPERTENSION
     Dosage: 5 mg, once a day

REACTIONS (6)
  - Coronary artery disease [Recovered/Resolved]
  - Respiratory disorder [Recovered/Resolved]
  - Fall [Recovered/Resolved]
  - Blood glucose decreased [Recovered/Resolved]
  - Skull fracture [Recovered/Resolved]
  - Subdural haematoma [Recovered/Resolved]
